FAERS Safety Report 17026554 (Version 1)
Quarter: 2019Q4

REPORT INFORMATION
  Report Type: Spontaneous
  Country: GB (occurrence: GB)
  Receive Date: 20191113
  Receipt Date: 20191113
  Transmission Date: 20200122
  Serious: Yes (Other)
  Sender: FDA-Public Use
  Company Number: GB-PFIZER INC-2019486088

PATIENT
  Age: 53 Year
  Sex: Male
  Weight: 92 kg

DRUGS (22)
  1. LACTULOSE. [Concomitant]
     Active Substance: LACTULOSE
  2. ORAMORPH SR SUSTAINED RELEASE [Concomitant]
     Active Substance: MORPHINE SULFATE
  3. RANITIDINE. [Concomitant]
     Active Substance: RANITIDINE
  4. PARACETAMOL [Concomitant]
     Active Substance: ACETAMINOPHEN
  5. TRUVADA [Concomitant]
     Active Substance: EMTRICITABINE\TENOFOVIR DISOPROXIL FUMARATE
  6. ACETYLSALICYLIC ACID [Concomitant]
     Active Substance: ASPIRIN
  7. SALBUTAMOL [Concomitant]
     Active Substance: ALBUTEROL
  8. CLOPIDOGREL [Concomitant]
     Active Substance: CLOPIDOGREL BISULFATE
  9. RALTEGRAVIR. [Concomitant]
     Active Substance: RALTEGRAVIR
     Dosage: UNK
  10. CASSIA SENNA [Concomitant]
     Active Substance: HERBALS\SENNOSIDES
  11. BISOPROLOL FUMARATE. [Concomitant]
     Active Substance: BISOPROLOL FUMARATE
  12. DALTEPARIN SODIUM [Concomitant]
     Active Substance: DALTEPARIN SODIUM
  13. PRAVASTATIN. [Concomitant]
     Active Substance: PRAVASTATIN
  14. PREGABALIN. [Suspect]
     Active Substance: PREGABALIN
     Indication: BACK PAIN
     Dosage: 75 MG, 1X/DAY (WITH WATER)
     Route: 048
     Dates: start: 20180515, end: 20180515
  15. FEXOFENADINE [Concomitant]
     Active Substance: FEXOFENADINE HYDROCHLORIDE
  16. MAGNESIUM HYDROXIDE. [Concomitant]
     Active Substance: MAGNESIUM HYDROXIDE
  17. NAPROXEN. [Concomitant]
     Active Substance: NAPROXEN
  18. PROCHLORPERAZINE. [Concomitant]
     Active Substance: PROCHLORPERAZINE
  19. ISOSORB [ISOSORBIDE MONONITRATE] [Concomitant]
  20. ATAZANAVIR. [Concomitant]
     Active Substance: ATAZANAVIR
  21. TRAMADOL. [Concomitant]
     Active Substance: TRAMADOL
  22. CANDESARTAN. [Concomitant]
     Active Substance: CANDESARTAN

REACTIONS (5)
  - Feeling abnormal [Unknown]
  - Tremor [Recovering/Resolving]
  - Hallucination [Recovering/Resolving]
  - Psychotic disorder [Recovering/Resolving]
  - Affect lability [Unknown]

NARRATIVE: CASE EVENT DATE: 20180515
